FAERS Safety Report 17694994 (Version 1)
Quarter: 2020Q3

REPORT INFORMATION
  Report Type: Spontaneous
  Country: US (occurrence: US)
  Receive Date: 20200422
  Receipt Date: 20200422
  Transmission Date: 20201104
  Serious: No
  Sender: FDA-Public Use
  Company Number: US-ALMIRALL, LLC-2020AQU000025

PATIENT

DRUGS (1)
  1. SARECYCLINE. [Suspect]
     Active Substance: SARECYCLINE
     Route: 048

REACTIONS (1)
  - Drug ineffective [Unknown]
